FAERS Safety Report 5031185-4 (Version None)
Quarter: 2006Q2

REPORT INFORMATION
  Report Type: 
  Country: None (occurrence: None)
  Receive Date: 20060615
  Receipt Date: 20060530
  Transmission Date: 20061013
  Serious: Yes (Other)
  Sender: FDA-Public Use
  Company Number: DSA_28261_2006

PATIENT
  Age: 25 Year
  Sex: Male

DRUGS (1)
  1. TAVOR /00273201/ [Suspect]
     Indication: ANXIETY
     Dosage: DF PO
     Route: 048

REACTIONS (2)
  - DYSPHAGIA [None]
  - EXTRAPYRAMIDAL DISORDER [None]
